FAERS Safety Report 21906028 (Version 2)
Quarter: 2023Q1

REPORT INFORMATION
  Report Type: Spontaneous
  Country: US (occurrence: US)
  Receive Date: 20230124
  Receipt Date: 20230222
  Transmission Date: 20230418
  Serious: No
  Sender: FDA-Public Use
  Company Number: US-JNJFOC-20230132360

PATIENT

DRUGS (1)
  1. STELARA [Suspect]
     Active Substance: USTEKINUMAB
     Indication: Gastrointestinal disorder
     Route: 058

REACTIONS (3)
  - Product dose omission issue [Unknown]
  - Manufacturing product storage issue [Unknown]
  - Off label use [Unknown]

NARRATIVE: CASE EVENT DATE: 20230116
